FAERS Safety Report 16933022 (Version 1)
Quarter: 2019Q4

REPORT INFORMATION
  Report Type: Spontaneous
  Country: US (occurrence: US)
  Receive Date: 20191018
  Receipt Date: 20191018
  Transmission Date: 20200122
  Serious: No
  Sender: FDA-Public Use
  Company Number: US-DRREDDYS-USA/USA/19/0114960

PATIENT
  Age: 72 Year
  Sex: Male
  Weight: 89.55 kg

DRUGS (1)
  1. HABITROL [Suspect]
     Active Substance: NICOTINE
     Indication: TOBACCO USER
     Route: 062
     Dates: start: 20190922, end: 20191009

REACTIONS (4)
  - Application site vesicles [Unknown]
  - Application site rash [Recovering/Resolving]
  - Treatment noncompliance [Unknown]
  - Application site pruritus [Recovering/Resolving]

NARRATIVE: CASE EVENT DATE: 20190922
